FAERS Safety Report 8049012-X (Version None)
Quarter: 2012Q1

REPORT INFORMATION
  Report Type: 
  Country: None (occurrence: None)
  Receive Date: 20120117
  Receipt Date: 20120113
  Transmission Date: 20120608
  Serious: No
  Sender: FDA-Public Use
  Company Number: US-BAYER-2012-004677

PATIENT
  Age: 34 Year
  Sex: Male

DRUGS (1)
  1. BETASERON [Suspect]
     Indication: MULTIPLE SCLEROSIS
     Dosage: 0.25 MG, QOD
     Route: 058
     Dates: start: 20100501

REACTIONS (3)
  - PSORIASIS [None]
  - INJECTION SITE PAIN [None]
  - INJECTION SITE HAEMORRHAGE [None]
